FAERS Safety Report 4706263-7 (Version None)
Quarter: 2005Q2

REPORT INFORMATION
  Report Type: 
  Country: None (occurrence: None)
  Receive Date: 20050629
  Receipt Date: 20050413
  Transmission Date: 20051028
  Serious: No
  Sender: FDA-Public Use
  Company Number: 05P-163-0297912-00

PATIENT
  Age: 54 Year
  Sex: Male
  Weight: 67.3 kg

DRUGS (14)
  1. HUMIRA [Suspect]
     Indication: RHEUMATOID ARTHRITIS
     Dosage: 40 MG, 1 IN 2 WK, SUBCUTANEOUS
     Route: 058
     Dates: start: 20041101, end: 20050210
  2. LEFLUNOMIDE [Concomitant]
  3. ALENDRONATE [Concomitant]
  4. ASPIRIN [Concomitant]
  5. CALCIUM GLUCONATE [Concomitant]
  6. CAPTOPRIL [Concomitant]
  7. DIGOXIN [Concomitant]
  8. FUROSEMIDE [Concomitant]
  9. GLYCERYL TRINITRATE [Concomitant]
  10. GLYCERYL TRINITRATE [Concomitant]
  11. OMEPRAZOLE [Concomitant]
  12. PREDNISONE TAB [Concomitant]
  13. RANITIDINE [Concomitant]
  14. ALBUTEROL SULFATE HFA [Concomitant]

REACTIONS (1)
  - PURPURA [None]
